FAERS Safety Report 6580064-X (Version None)
Quarter: 2010Q1

REPORT INFORMATION
  Report Type: 
  Country: None (occurrence: None)
  Receive Date: 20100212
  Receipt Date: 20100204
  Transmission Date: 20100710
  Serious: Yes (Life-Threatening)
  Sender: FDA-Public Use
  Company Number: AU-MERCK-1002USA00730

PATIENT
  Sex: Male

DRUGS (4)
  1. PRINIVIL [Suspect]
     Route: 065
  2. ATORVASTATIN [Suspect]
     Route: 065
  3. GLICLAZIDE [Suspect]
     Route: 065
  4. METFORMIN HYDROCHLORIDE [Suspect]
     Route: 048

REACTIONS (3)
  - HYPERKALAEMIA [None]
  - LACTIC ACIDOSIS [None]
  - RENAL FAILURE ACUTE [None]
